FAERS Safety Report 9522111 (Version 6)
Quarter: 2013Q4

REPORT INFORMATION
  Report Type: Spontaneous
  Country: US (occurrence: None)
  Receive Date: 20130829
  Receipt Date: 20131120
  Transmission Date: 20140711
  Serious: Yes (Hospitalization, Other)
  Sender: FDA-Public Use
  Company Number: 2013037669

PATIENT
  Sex: Female
  Weight: 97.52 kg

DRUGS (18)
  1. BERINERT-P [Suspect]
     Indication: HEREDITARY ANGIOEDEMA
     Route: 042
  2. CORYNIZ [Suspect]
     Route: 042
  3. HYDROMORPHONE [Concomitant]
  4. CLONAZEPAM (CLONAZEPAM) [Concomitant]
  5. PROMETHAZINE (PROMETHAZINE) [Concomitant]
  6. ALBUTEROL (SALBUTAMOL) [Concomitant]
  7. LEVSIN (HYOSCYAMINE SULFATE) [Concomitant]
  8. CARDIZEM (DILTIAZEM) [Concomitant]
  9. CELEXA (CITALOPRAM HYDROBROMIDE) [Concomitant]
  10. CLONAZEPAM (CLONAZEPAM) [Concomitant]
  11. DIPHENHYDRAMINE (DIPHENHYDRAMINE) [Concomitant]
  12. LASIX (FUROSEMIDE) [Concomitant]
  13. POTASSIUM CHLORIDE (POTASSIUM CHLORIDE) [Concomitant]
  14. SEROQUEL (QUETIAPINE) [Concomitant]
  15. ROPINIROLE (ROPINIROLE) [Concomitant]
  16. DILAUDID (HYDROMORPHONE HYDROCHLORIDE) [Concomitant]
  17. LORAZEPAM (LORAZEPAM) [Concomitant]
  18. VIIBRYD (VILAZODONE) (ALL OTHER THERAPEUTIC PRODUCTS) [Concomitant]

REACTIONS (11)
  - Gastrointestinal disorder [None]
  - Swelling [None]
  - Hypotension [None]
  - Swollen tongue [None]
  - Respiratory distress [None]
  - Abdominal pain [None]
  - Drug ineffective [None]
  - Swelling face [None]
  - Pharyngeal oedema [None]
  - Dyspnoea [None]
  - Acute respiratory distress syndrome [None]
